FAERS Safety Report 25682477 (Version 1)
Quarter: 2025Q3

REPORT INFORMATION
  Report Type: Spontaneous
  Country: EU (occurrence: EU)
  Receive Date: 20250814
  Receipt Date: 20250814
  Transmission Date: 20251020
  Serious: Yes (Other)
  Sender: BIOVITRUM
  Company Number: EU-BIOVITRUM-2025-FR-011036

PATIENT

DRUGS (1)
  1. ANAKINRA [Suspect]
     Active Substance: ANAKINRA
     Indication: Product used for unknown indication

REACTIONS (12)
  - Insomnia [Recovered/Resolved]
  - Haematemesis [Recovered/Resolved]
  - Nasopharyngitis [Recovered/Resolved]
  - Giant cell arteritis [Recovered/Resolved]
  - Condition aggravated [Recovered/Resolved]
  - Pain in extremity [Unknown]
  - Depression [Unknown]
  - Irritability [Unknown]
  - Dizziness [Unknown]
  - Vision blurred [Unknown]
  - Neck pain [Unknown]
  - Bronchitis [Recovered/Resolved]

NARRATIVE: CASE EVENT DATE: 20190601
